FAERS Safety Report 17330090 (Version 1)
Quarter: 2020Q1

REPORT INFORMATION
  Report Type: Report from Study
  Country: PH (occurrence: PH)
  Receive Date: 20200128
  Receipt Date: 20200128
  Transmission Date: 20200409
  Serious: Yes (Other)
  Sender: FDA-Public Use
  Company Number: PH-PFIZER INC-2020026297

PATIENT
  Age: 60 Year
  Sex: Male

DRUGS (8)
  1. RIFAMPICIN [Suspect]
     Active Substance: RIFAMPIN
     Indication: TUBERCULOSIS
     Dosage: 1300 MG, UNK
     Route: 048
     Dates: start: 20190815, end: 20190911
  2. LINEZOLID. [Suspect]
     Active Substance: LINEZOLID
     Indication: TUBERCULOSIS
     Dosage: 600 MG, UNK
     Route: 048
     Dates: start: 20190815, end: 20191019
  3. ISONIAZID. [Suspect]
     Active Substance: ISONIAZID
     Indication: TUBERCULOSIS
     Dosage: 225 MG, UNK
     Route: 048
     Dates: start: 20190815, end: 20191019
  4. ETHAMBUTOL [Suspect]
     Active Substance: ETHAMBUTOL HYDROCHLORIDE
     Indication: TUBERCULOSIS
     Dosage: 825 MG, UNK
     Route: 048
     Dates: start: 20190815, end: 20191019
  5. PYRAZINAMIDE. [Suspect]
     Active Substance: PYRAZINAMIDE
     Indication: TUBERCULOSIS
     Dosage: 1200 MG, UNK
     Route: 048
     Dates: start: 20190815, end: 20191019
  6. PYRIDOXINE [Concomitant]
     Active Substance: PYRIDOXINE
     Dosage: 10 MG, UNK
     Route: 048
     Dates: start: 20190815, end: 20191019
  7. RIFAMPICIN [Suspect]
     Active Substance: RIFAMPIN
     Dosage: 1650 MG, UNK
     Route: 048
     Dates: start: 20190912, end: 20191019
  8. HUMULIN NOS [Concomitant]
     Active Substance: INSULIN HUMAN
     Dosage: 16 IU, UNK
     Route: 058
     Dates: start: 20190818, end: 20190920

REACTIONS (1)
  - Drug-induced liver injury [Recovered/Resolved]

NARRATIVE: CASE EVENT DATE: 20190916
